FAERS Safety Report 17455891 (Version 2)
Quarter: 2021Q2

REPORT INFORMATION
  Report Type: Report from Study
  Country: US (occurrence: US)
  Receive Date: 20200225
  Receipt Date: 20210409
  Transmission Date: 20210716
  Serious: No
  Sender: FDA-Public Use
  Company Number: US-BRISTOL-MYERS SQUIBB COMPANY-BMS-2020-016103

PATIENT
  Age: 87 Year
  Sex: Female
  Weight: 68.95 kg

DRUGS (1)
  1. NIVOLUMAB [Suspect]
     Active Substance: NIVOLUMAB
     Indication: RENAL CELL CARCINOMA
     Dosage: UNK, Q4WK
     Route: 065
     Dates: start: 2019

REACTIONS (8)
  - Vomiting [Recovered/Resolved]
  - Asthenia [Unknown]
  - Abdominal discomfort [Unknown]
  - Malaise [Unknown]
  - Incorrect product administration duration [Unknown]
  - Nausea [Unknown]
  - Secretion discharge [Recovered/Resolved]
  - Diarrhoea [Unknown]

NARRATIVE: CASE EVENT DATE: 20210401
